FAERS Safety Report 7042078-5 (Version None)
Quarter: 2010Q4

REPORT INFORMATION
  Report Type: 
  Country: None (occurrence: None)
  Receive Date: 20101013
  Receipt Date: 20091217
  Transmission Date: 20110411
  Serious: No
  Sender: FDA-Public Use
  Company Number: US-ASTRAZENECA-2009SE32570

PATIENT
  Age: 71 Year
  Sex: Female

DRUGS (12)
  1. SYMBICORT [Suspect]
     Indication: CHRONIC OBSTRUCTIVE PULMONARY DISEASE
     Dosage: 320 MCG, 80/4.5 TWO PUFFS TWICE A DAY
     Route: 055
     Dates: start: 20091101
  2. FUROSEMIDE [Concomitant]
  3. POTASSIUM [Concomitant]
  4. PREDNISONE [Concomitant]
  5. DILTIAZEM [Concomitant]
  6. MUCINEX [Concomitant]
  7. LISINOPRIL [Concomitant]
  8. METOPROLOL [Concomitant]
  9. OMEPRAZOLE [Concomitant]
  10. TAPAZOLE [Concomitant]
  11. ALBUTEROL WITH IPRATROPIUM [Concomitant]
  12. VITAMINS,B,D.AND B12 [Concomitant]

REACTIONS (1)
  - VISION BLURRED [None]
